FAERS Safety Report 24113717 (Version 1)
Quarter: 2024Q3

REPORT INFORMATION
  Report Type: Spontaneous
  Country: NL (occurrence: NL)
  Receive Date: 20240720
  Receipt Date: 20240720
  Transmission Date: 20241016
  Serious: Yes (Other)
  Sender: AUROBINDO
  Company Number: NL-LRB-00984456

PATIENT
  Age: 36 Year
  Sex: Female
  Weight: 105 kg

DRUGS (1)
  1. AMOXICILLIN [Suspect]
     Active Substance: AMOXICILLIN
     Indication: Pneumonia
     Dosage: 500 MILLIGRAM, 3 TIMES A DAY
     Route: 065
     Dates: start: 20240619

REACTIONS (2)
  - Hallucination, auditory [Not Recovered/Not Resolved]
  - Nightmare [Not Recovered/Not Resolved]
